FAERS Safety Report 9812121 (Version 3)
Quarter: 2014Q1

REPORT INFORMATION
  Report Type: Report from Study
  Country: BR (occurrence: BR)
  Receive Date: 20140111
  Receipt Date: 20140218
  Transmission Date: 20141002
  Serious: Yes (Other)
  Sender: FDA-Public Use
  Company Number: BR-US-EMD SERONO, INC.-7173594

PATIENT
  Age: 27 Year
  Sex: Male

DRUGS (1)
  1. REBIF [Suspect]
     Indication: MULTIPLE SCLEROSIS
     Dates: start: 20011210, end: 201310

REACTIONS (14)
  - Gastric ulcer [Recovered/Resolved]
  - Gamma-glutamyltransferase increased [Recovering/Resolving]
  - Alanine aminotransferase increased [Recovering/Resolving]
  - Aspartate aminotransferase increased [Recovering/Resolving]
  - Gastritis [Recovered/Resolved]
  - Oesophagitis [Unknown]
  - Hepatic steatosis [Not Recovered/Not Resolved]
  - Quality of life decreased [Recovered/Resolved]
  - Red blood cell sedimentation rate increased [Unknown]
  - Dyshidrotic eczema [Not Recovered/Not Resolved]
  - Blood alkaline phosphatase increased [Recovering/Resolving]
  - Myalgia [Unknown]
  - Pyrexia [Unknown]
  - Pain [Recovered/Resolved]
